FAERS Safety Report 5472418-X (Version None)
Quarter: 2007Q3

REPORT INFORMATION
  Report Type: 
  Country: None (occurrence: None)
  Receive Date: 20070927
  Receipt Date: 20070912
  Transmission Date: 20080115
  Serious: Yes (Hospitalization)
  Sender: FDA-Public Use
  Company Number: 161428ISR

PATIENT
  Age: 20 Year
  Sex: Male

DRUGS (3)
  1. FLUOROURACIL [Suspect]
     Indication: RECTAL CANCER
  2. BEVACIZUMAB [Suspect]
     Indication: RECTAL CANCER
  3. FOLINIC ACID [Concomitant]

REACTIONS (2)
  - COLITIS ISCHAEMIC [None]
  - IMPAIRED HEALING [None]
